FAERS Safety Report 17083335 (Version 1)
Quarter: 2019Q4

REPORT INFORMATION
  Report Type: Spontaneous
  Country: NL (occurrence: NL)
  Receive Date: 20191127
  Receipt Date: 20191127
  Transmission Date: 20200122
  Serious: Yes (Other)
  Sender: FDA-Public Use
  Company Number: NL-HIKMA PHARMACEUTICALS USA INC.-NL-H14001-19-49902

PATIENT
  Age: 52 Year
  Sex: Female

DRUGS (6)
  1. FLUCLOXACILLIN [Suspect]
     Active Substance: FLUCLOXACILLIN
     Indication: PYELITIS
     Dosage: ()
     Route: 048
  2. CEFTRIAXON [Suspect]
     Active Substance: CEFTRIAXONE
     Indication: PYELITIS
     Dosage: 5 DAGEN LANG INFUUS
     Route: 065
     Dates: start: 201904
  3. COTRIMOXAZOL [Suspect]
     Active Substance: SULFAMETHOXAZOLE\TRIMETHOPRIM
     Indication: PYELITIS
     Dosage: TABLETTEN ()
     Route: 048
  4. KALIUM CITRAT [Concomitant]
     Indication: PRODUCT USED FOR UNKNOWN INDICATION
     Dosage: ()
     Route: 065
  5. VITAMIN [Concomitant]
     Active Substance: VITAMINS
     Indication: PRODUCT USED FOR UNKNOWN INDICATION
     Dosage: ()
     Route: 065
  6. ZILVERKAARS VAN GOLDEN NATURALSCIMICIFUGA PREPARAAT [Suspect]
     Active Substance: BLACK COHOSH
     Indication: MENOPAUSE
     Dosage: 2 TABLETTEN PER DAG
     Route: 065
     Dates: start: 2019, end: 201910

REACTIONS (6)
  - Memory impairment [Not Recovered/Not Resolved]
  - Ocular discomfort [Not Recovered/Not Resolved]
  - Paraesthesia [Not Recovered/Not Resolved]
  - Fatigue [Not Recovered/Not Resolved]
  - Peroneal nerve palsy [Not Recovered/Not Resolved]
  - Loss of consciousness [Not Recovered/Not Resolved]

NARRATIVE: CASE EVENT DATE: 201909
